FAERS Safety Report 21727128 (Version 1)
Quarter: 2022Q4

REPORT INFORMATION
  Report Type: Spontaneous
  Country: US (occurrence: None)
  Receive Date: 20221213
  Receipt Date: 20221213
  Transmission Date: 20230112
  Serious: Yes (Hospitalization)
  Sender: FDA-Public Use
  Company Number: None

PATIENT
  Age: 63 Year
  Sex: Female

DRUGS (6)
  1. ARALAST NP [Suspect]
     Active Substance: .ALPHA.1-PROTEINASE INHIBITOR HUMAN
     Indication: Alpha-1 antitrypsin deficiency
     Route: 042
     Dates: start: 20210203
  2. BENZONATATE CAP [Concomitant]
  3. EPINEPHRINE [Concomitant]
     Active Substance: EPINEPHRINE
  4. HEP LOCK [Concomitant]
  5. LEVOTHYROXIN TAB [Concomitant]
  6. SOD CHL STRL FLSH [Concomitant]

REACTIONS (2)
  - Influenza [None]
  - Myocardial infarction [None]

NARRATIVE: CASE EVENT DATE: 20221210
